FAERS Safety Report 25768063 (Version 1)
Quarter: 2025Q3

REPORT INFORMATION
  Report Type: Spontaneous
  Country: US (occurrence: US)
  Receive Date: 20250905
  Receipt Date: 20250905
  Transmission Date: 20251021
  Serious: No
  Sender: DOMPE FARMACEUTICI
  Company Number: US-FARMAPROD-202505-1754

PATIENT
  Age: 54 Year
  Sex: Female

DRUGS (15)
  1. OXERVATE [Suspect]
     Active Substance: CENEGERMIN-BKBJ
     Indication: Neurotrophic keratopathy
     Route: 047
     Dates: start: 20250517, end: 20250619
  2. OXERVATE [Suspect]
     Active Substance: CENEGERMIN-BKBJ
  3. OXERVATE [Suspect]
     Active Substance: CENEGERMIN-BKBJ
  4. TERBINAFINE HYDROCHLORIDE [Concomitant]
     Active Substance: TERBINAFINE HYDROCHLORIDE
  5. VIACTIV [CALCIUM;COLECALCIFEROL] [Concomitant]
  6. EMERGEN C IMMUNE PLUS [Concomitant]
  7. ALPRAZOLAM [Concomitant]
     Active Substance: ALPRAZOLAM
  8. CALCIUM [Concomitant]
     Active Substance: CALCIUM
  9. ASPIRIN [Concomitant]
     Active Substance: ASPIRIN
  10. SYSTANE (HYPROMELLOSE 2910 (4000 MPA.S)) [Concomitant]
     Active Substance: HYPROMELLOSE 2910 (4000 MPA.S)
  11. BROMFENAC;PREDNISOLONE [Concomitant]
  12. PENTOXIFYLLINE [Concomitant]
     Active Substance: PENTOXIFYLLINE
  13. LETROZOLE [Concomitant]
     Active Substance: LETROZOLE
  14. XGEVA [Concomitant]
     Active Substance: DENOSUMAB
  15. IBRANCE [Concomitant]
     Active Substance: PALBOCICLIB

REACTIONS (10)
  - Eye pain [Recovering/Resolving]
  - Headache [Unknown]
  - Vision blurred [Unknown]
  - Dry eye [Recovering/Resolving]
  - Lacrimation increased [Recovering/Resolving]
  - Photophobia [Recovering/Resolving]
  - Eye swelling [Recovering/Resolving]
  - Blepharitis [Unknown]
  - Impaired driving ability [Recovering/Resolving]
  - Visual impairment [Unknown]

NARRATIVE: CASE EVENT DATE: 20250518
